FAERS Safety Report 6442995-0 (Version None)
Quarter: 2009Q4

REPORT INFORMATION
  Report Type: 
  Country: None (occurrence: None)
  Receive Date: 20091117
  Receipt Date: 20091105
  Transmission Date: 20100525
  Serious: Yes (Hospitalization)
  Sender: FDA-Public Use
  Company Number: PHEH2009US11090

PATIENT
  Sex: Female

DRUGS (22)
  1. EXJADE [Suspect]
     Indication: BLOOD DISORDER
     Dosage: 500 MG, QD
     Dates: start: 20090818
  2. EXJADE [Suspect]
     Indication: IRON OVERLOAD
     Dosage: 1000 MG, QD
     Route: 048
     Dates: start: 20090817, end: 20090921
  3. EXJADE [Suspect]
     Indication: SERUM FERRITIN INCREASED
  4. EXJADE [Suspect]
     Indication: MYELODYSPLASTIC SYNDROME
  5. CHONDROITIN A [Concomitant]
  6. CALCIUM [Concomitant]
     Dosage: UNK
  7. LEVSIN [Concomitant]
     Dosage: 0.25 MG, TID PRN
     Route: 048
  8. LEVSIN [Concomitant]
     Dosage: 0.125 MG, PRN
     Route: 048
  9. LASIX [Concomitant]
     Dosage: 20 MG, QOD
  10. PREDNISONE [Concomitant]
     Indication: ARTHROPATHY
  11. FENTANYL [Concomitant]
     Route: 062
  12. FISH OIL [Concomitant]
  13. MULTIVITAMIN ^LAPPE^ [Concomitant]
  14. ASCORBIC ACID [Concomitant]
  15. VITAMIN D [Concomitant]
     Dosage: ONE TABLET DAILY
  16. CALCIUM WITH VITAMIN D [Concomitant]
     Dosage: UNK, ONE DAILY
     Route: 048
  17. CALCIUM + MAGNESIUM + ZINC [Concomitant]
     Dosage: UNK, ONE DAILY
     Route: 048
  18. POTASSIUM CHLORIDE [Concomitant]
     Dosage: 10 MEQ, QD
     Route: 048
  19. DURAGESIC-100 [Concomitant]
     Dosage: 100 MCG EVERY 72 HRS
     Route: 062
  20. AZACITIDINE [Concomitant]
     Indication: MYELODYSPLASTIC SYNDROME
     Dosage: 77 MG, QD
     Route: 042
     Dates: start: 20090907, end: 20090911
  21. AZACITIDINE [Concomitant]
     Dosage: 77 MG, QD
     Route: 042
     Dates: start: 20090914, end: 20090918
  22. HYDROCODONE BITARTRATE AND ACETAMINOPHEN [Concomitant]

REACTIONS (23)
  - ABDOMINAL PAIN [None]
  - ABDOMINAL TENDERNESS [None]
  - ANAEMIA [None]
  - BLOOD GLUCOSE INCREASED [None]
  - BLOOD SODIUM DECREASED [None]
  - BLOOD UREA INCREASED [None]
  - CHILLS [None]
  - DEHYDRATION [None]
  - DIARRHOEA [None]
  - FATIGUE [None]
  - HYPERHIDROSIS [None]
  - MALAISE [None]
  - NAUSEA [None]
  - NEUTROPENIA [None]
  - PAIN [None]
  - PANCYTOPENIA [None]
  - PLATELET COUNT DECREASED [None]
  - PLEURAL EFFUSION [None]
  - PNEUMONIA [None]
  - THROMBOCYTOPENIA [None]
  - URINARY TRACT INFECTION [None]
  - VOMITING [None]
  - WHITE BLOOD CELL COUNT DECREASED [None]
